FAERS Safety Report 17563113 (Version 4)
Quarter: 2021Q2

REPORT INFORMATION
  Report Type: Report from Study
  Country: US (occurrence: US)
  Receive Date: 20200319
  Receipt Date: 20210517
  Transmission Date: 20210716
  Serious: Yes (Hospitalization, Other)
  Sender: FDA-Public Use
  Company Number: US-INCYTE CORPORATION-2020IN002453

PATIENT

DRUGS (15)
  1. TAMSULOSIN HCL [Concomitant]
     Active Substance: TAMSULOSIN HYDROCHLORIDE
     Indication: BENIGN PROSTATIC HYPERPLASIA
     Dosage: 0.4 MILLIGRAM, QD
     Route: 048
     Dates: start: 20181201
  2. CITRUCEL [Concomitant]
     Active Substance: METHYLCELLULOSE (4000 MPA.S)
     Indication: CONSTIPATION PROPHYLAXIS
     Dosage: 2 GRAM, QD
     Route: 048
     Dates: start: 2017
  3. NAVITOCLAX [Concomitant]
     Active Substance: NAVITOCLAX
     Indication: MYELOFIBROSIS
     Dosage: 100 MILLIGRAM, QD
     Route: 065
     Dates: start: 20190123
  4. ALLOPURINOL. [Concomitant]
     Active Substance: ALLOPURINOL
     Dosage: 100 MILLIGRAM, QD
     Route: 048
     Dates: start: 20170907
  5. PREDNISOLONE. [Concomitant]
     Active Substance: PREDNISOLONE
     Indication: HERPES ZOSTER
  6. JAKAFI [Suspect]
     Active Substance: RUXOLITINIB
     Indication: MYELOFIBROSIS
     Dosage: 10?25 MG, BID
     Route: 048
     Dates: start: 201604
  7. CALCIUM CITRATE [Concomitant]
     Active Substance: CALCIUM CITRATE
     Indication: SUPPLEMENTATION THERAPY
     Dosage: 500 MILLIGRAM, BID
     Route: 065
     Dates: start: 20170303
  8. VITAMIN D3 [Concomitant]
     Active Substance: CHOLECALCIFEROL
     Indication: SUPPLEMENTATION THERAPY
     Dosage: 50000 UNIT
     Route: 065
  9. JAKAFI [Suspect]
     Active Substance: RUXOLITINIB
     Indication: PRIMARY MYELOFIBROSIS
  10. ALLOPURINOL. [Concomitant]
     Active Substance: ALLOPURINOL
     Indication: CHRONIC KIDNEY DISEASE
     Dosage: 300 MILLIGRAM
     Route: 065
  11. DOXYCYCLINE HYCLATE. [Concomitant]
     Active Substance: DOXYCYCLINE HYCLATE
     Indication: ACNE
     Dosage: 150 MILLIGRAM
     Route: 065
  12. DOXYCYCLINE HYCLATE. [Concomitant]
     Active Substance: DOXYCYCLINE HYCLATE
     Dosage: 100 MILLIGRAM, BID
     Route: 048
     Dates: start: 2017
  13. VITAMIN D3 [Concomitant]
     Active Substance: CHOLECALCIFEROL
     Dosage: 1000 INTERNATIONAL UNIT, QD
     Route: 048
     Dates: start: 20170213
  14. NAVITOCLAX [Concomitant]
     Active Substance: NAVITOCLAX
     Indication: CHEMOTHERAPY
     Dosage: 300 MILLIGRAM, QD
     Route: 048
     Dates: start: 20180711
  15. PREDNISOLONE. [Concomitant]
     Active Substance: PREDNISOLONE
     Indication: VISION BLURRED
     Dosage: 1 GTT
     Route: 047
     Dates: start: 20180801, end: 20181017

REACTIONS (2)
  - Product dose omission issue [Unknown]
  - Nephrolithiasis [Recovered/Resolved]

NARRATIVE: CASE EVENT DATE: 202003
